FAERS Safety Report 15878792 (Version 1)
Quarter: 2019Q1

REPORT INFORMATION
  Report Type: Spontaneous
  Country: FR (occurrence: FR)
  Receive Date: 20190128
  Receipt Date: 20190128
  Transmission Date: 20190417
  Serious: Yes (Disabling)
  Sender: FDA-Public Use
  Company Number: FR-SA-2019SA021029

PATIENT
  Age: 69 Year
  Sex: Male
  Weight: 55 kg

DRUGS (6)
  1. PANTOPRAZOLE [Suspect]
     Active Substance: PANTOPRAZOLE
     Dosage: 40 MG, QD
     Route: 048
     Dates: start: 20181006
  2. OFLOCET [Suspect]
     Active Substance: OFLOXACIN
     Indication: ARTHRITIS BACTERIAL
     Dosage: 400 MG, QD
     Route: 048
     Dates: start: 20181031, end: 20181218
  3. RIFADINE [Suspect]
     Active Substance: RIFAMPIN
     Indication: ARTHRITIS BACTERIAL
     Dosage: 900 MG, QD
     Route: 048
     Dates: start: 20181006, end: 20181018
  4. TRAMADOL HYDROCHLORIDE. [Concomitant]
     Active Substance: TRAMADOL HYDROCHLORIDE
     Dosage: 50 MG, PRN
     Route: 048
  5. DOLIPRANE [Concomitant]
     Active Substance: ACETAMINOPHEN
     Dosage: 1 G, PRN
     Route: 048
  6. FOLIC ACID. [Concomitant]
     Active Substance: FOLIC ACID
     Dosage: 10 MG, QD
     Route: 048

REACTIONS (1)
  - Axonal neuropathy [Not Recovered/Not Resolved]

NARRATIVE: CASE EVENT DATE: 201811
